FAERS Safety Report 15220219 (Version 1)
Quarter: 2018Q3

REPORT INFORMATION
  Report Type: Spontaneous
  Country: US (occurrence: US)
  Receive Date: 20180731
  Receipt Date: 20180731
  Transmission Date: 20181010
  Serious: No
  Sender: FDA-Public Use
  Company Number: US-TEVA-2018-US-934029

PATIENT
  Age: 24 Year
  Sex: Female

DRUGS (1)
  1. DESVENLAFAXINE SODIUM [Suspect]
     Active Substance: DESVENLAFAXINE
     Indication: DEPRESSION
     Dosage: DOSE STRENGTH:  25
     Route: 065

REACTIONS (1)
  - Acne [Unknown]
